FAERS Safety Report 17663624 (Version 2)
Quarter: 2020Q2

REPORT INFORMATION
  Report Type: Spontaneous
  Country: US (occurrence: US)
  Receive Date: 20200414
  Receipt Date: 20200613
  Transmission Date: 20200713
  Serious: No
  Sender: FDA-Public Use
  Company Number: US-ASTRAZENECA-2020SE40479

PATIENT
  Sex: Male
  Weight: 151 kg

DRUGS (1)
  1. BYDUREON BCISE [Suspect]
     Active Substance: EXENATIDE
     Indication: TYPE 2 DIABETES MELLITUS
     Dosage: 2 MG/ 0.85 ML, ONCE A WEEK
     Route: 058
     Dates: start: 2018

REACTIONS (6)
  - Injection site haemorrhage [Recovered/Resolved]
  - Incorrect dose administered by device [Unknown]
  - Injection site pain [Recovered/Resolved]
  - Device delivery system issue [Unknown]
  - Injection site bruising [Recovered/Resolved]
  - Device failure [Unknown]
